FAERS Safety Report 22645371 (Version 1)
Quarter: 2023Q2

REPORT INFORMATION
  Report Type: Spontaneous
  Country: US (occurrence: None)
  Receive Date: 20230626
  Receipt Date: 20230626
  Transmission Date: 20230722
  Serious: No
  Sender: FDA-Public Use
  Company Number: None

PATIENT
  Age: 47 Year
  Sex: Female

DRUGS (7)
  1. RINVOQ [Suspect]
     Active Substance: UPADACITINIB
     Indication: Rheumatoid arthritis
     Dosage: FREQUENCY : DAILY;?
     Route: 048
  2. ONDANSETRON [Concomitant]
     Active Substance: ONDANSETRON
  3. LATISSE [Concomitant]
     Active Substance: BIMATOPROST
  4. BOTOX [Concomitant]
     Active Substance: ONABOTULINUMTOXINA
  5. IBUPROFEN [Concomitant]
     Active Substance: IBUPROFEN
  6. IMITREX [Concomitant]
     Active Substance: SUMATRIPTAN SUCCINATE
  7. PREDNISONE [Concomitant]
     Active Substance: PREDNISONE

REACTIONS (2)
  - Influenza like illness [None]
  - Therapy interrupted [None]

NARRATIVE: CASE EVENT DATE: 20230626
